FAERS Safety Report 10102222 (Version 1)
Quarter: 2014Q2

REPORT INFORMATION
  Report Type: Spontaneous
  Country: US (occurrence: None)
  Receive Date: 20140423
  Receipt Date: 20140423
  Transmission Date: 20141212
  Serious: No
  Sender: FDA-Public Use
  Company Number: None

PATIENT
  Age: 77 Year
  Sex: Male

DRUGS (2)
  1. PROLIAPFS 60MG NOVARTIS [Suspect]
     Indication: BONE DISORDER
     Dosage: SQ, Q6M
     Route: 058
     Dates: start: 20131230, end: 20131230
  2. PROLIAPFS 60MG NOVARTIS [Suspect]
     Indication: CHONDROPATHY
     Dosage: SQ, Q6M
     Route: 058
     Dates: start: 20131230, end: 20131230

REACTIONS (1)
  - Atrial fibrillation [None]
